FAERS Safety Report 14778448 (Version 1)
Quarter: 2018Q2

REPORT INFORMATION
  Report Type: Spontaneous
  Country: US (occurrence: US)
  Receive Date: 20180412
  Receipt Date: 20180412
  Transmission Date: 20180711
  Serious: Yes (Death, Hospitalization)
  Sender: FDA-Public Use
  Company Number: None

PATIENT
  Age: 50 Year
  Sex: Female
  Weight: 58 kg

DRUGS (1)
  1. ATORVASTATIN CALCIUM. [Suspect]
     Active Substance: ATORVASTATIN CALCIUM
     Dates: end: 20180323

REACTIONS (8)
  - Disease progression [None]
  - Hepatic cancer metastatic [None]
  - Deep vein thrombosis [None]
  - Pneumonia [None]
  - Delirium [None]
  - Jaundice [None]
  - Asthenia [None]
  - Hallucination [None]

NARRATIVE: CASE EVENT DATE: 20180326
